FAERS Safety Report 22586528 (Version 1)
Quarter: 2023Q2

REPORT INFORMATION
  Report Type: Spontaneous
  Country: US (occurrence: US)
  Receive Date: 20230611
  Receipt Date: 20230611
  Transmission Date: 20230722
  Serious: No
  Sender: FDA-Public Use
  Company Number: US-PERRIGO-22US015360

PATIENT
  Age: 88 Year
  Sex: Female
  Weight: 72.562 kg

DRUGS (2)
  1. DICLOFENAC SODIUM [Suspect]
     Active Substance: DICLOFENAC SODIUM
     Indication: Headache
     Dosage: UNKNOWN, PRN
     Route: 061
     Dates: start: 20221110, end: 20221118
  2. DICLOFENAC SODIUM [Suspect]
     Active Substance: DICLOFENAC SODIUM
     Indication: Pain prophylaxis
     Dosage: UNKNOWN, BID
     Route: 061
     Dates: start: 20221110, end: 20221118

REACTIONS (4)
  - Drug effective for unapproved indication [Unknown]
  - Product administered at inappropriate site [Unknown]
  - Wrong technique in product usage process [Unknown]
  - Incorrect dose administered [Unknown]

NARRATIVE: CASE EVENT DATE: 20221110
